FAERS Safety Report 14768001 (Version 2)
Quarter: 2018Q2

REPORT INFORMATION
  Report Type: Spontaneous
  Country: IN (occurrence: IN)
  Receive Date: 20180417
  Receipt Date: 20180601
  Transmission Date: 20180711
  Serious: Yes (Hospitalization, Other)
  Sender: FDA-Public Use
  Company Number: IN-CIPLA LTD.-2018IN15368

PATIENT

DRUGS (5)
  1. BUDESONIDE. [Suspect]
     Active Substance: BUDESONIDE
     Indication: DYSPNOEA
     Dosage: 100 MG, 4 PUFFS A DAY
     Route: 048
     Dates: start: 201707, end: 201710
  2. DUOLIN (IPRATROPIUM BROMIDE\LEVOSALBUTAMOL SULPHATE) [Suspect]
     Active Substance: IPRATROPIUM BROMIDE\LEVALBUTEROL SULFATE
     Indication: DYSPNOEA
     Dosage: UNK
     Dates: start: 201710
  3. LEVOSALBUTAMOL [Suspect]
     Active Substance: LEVALBUTEROL
     Indication: DYSPNOEA
     Dosage: 0.31 MG, UNK
     Dates: start: 201710
  4. LEVOSALBUTAMOL [Suspect]
     Active Substance: LEVALBUTEROL
     Indication: WHEEZING
  5. DUOLIN (IPRATROPIUM BROMIDE\LEVOSALBUTAMOL SULPHATE) [Suspect]
     Active Substance: IPRATROPIUM BROMIDE\LEVALBUTEROL SULFATE
     Indication: WHEEZING

REACTIONS (9)
  - Incorrect dose administered by device [None]
  - Dyspnoea [Unknown]
  - Device issue [Unknown]
  - Dyspnoea [None]
  - Pyrexia [None]
  - Nasopharyngitis [Recovered/Resolved]
  - Lower respiratory tract infection [Recovered/Resolved]
  - Wheezing [Unknown]
  - Cough [None]

NARRATIVE: CASE EVENT DATE: 2017
